FAERS Safety Report 17457383 (Version 1)
Quarter: 2020Q1

REPORT INFORMATION
  Report Type: Report from Study
  Country: None (occurrence: US)
  Receive Date: 20200225
  Receipt Date: 20200225
  Transmission Date: 20200409
  Serious: Yes (Hospitalization)
  Sender: FDA-Public Use
  Company Number: US-ABBVIE-19K-163-2994558-00

PATIENT
  Sex: Female

DRUGS (4)
  1. VENCLEXTA [Suspect]
     Active Substance: VENETOCLAX
     Indication: CHRONIC MYELOID LEUKAEMIA
     Route: 048
     Dates: start: 20190601
  2. LEVAQUIN [Concomitant]
     Active Substance: LEVOFLOXACIN
     Indication: PROPHYLAXIS
  3. VENCLEXTA [Suspect]
     Active Substance: VENETOCLAX
     Indication: ACUTE MYELOID LEUKAEMIA
     Route: 048
     Dates: start: 20190601
  4. TIBSOVO [Concomitant]
     Active Substance: IVOSIDENIB
     Indication: ACUTE MYELOID LEUKAEMIA
     Dosage: TIBSOVO 250MG
     Route: 048
     Dates: start: 20190613

REACTIONS (7)
  - White blood cell count decreased [Unknown]
  - Platelet transfusion [Unknown]
  - Hospitalisation [Unknown]
  - Off label use [Unknown]
  - Platelet count decreased [Unknown]
  - Pyrexia [Unknown]
  - Transfusion [Unknown]

NARRATIVE: CASE EVENT DATE: 2019
